FAERS Safety Report 8886881 (Version 2)
Quarter: 2012Q4

REPORT INFORMATION
  Report Type: 
  Country: DE (occurrence: DE)
  Receive Date: 20121105
  Receipt Date: 20121126
  Transmission Date: 20130627
  Serious: Yes (Other)
  Sender: FDA-Public Use
  Company Number: DE-BAYER-2012-115220

PATIENT
  Age: 36 Year
  Sex: Female
  Weight: 120 kg

DRUGS (2)
  1. BETAFERON [Suspect]
  2. IBUPROFEN [Concomitant]

REACTIONS (4)
  - Angina pectoris [Unknown]
  - Non-cardiac chest pain [Unknown]
  - Cough [Unknown]
  - Chest pain [None]
